FAERS Safety Report 7648692-8 (Version None)
Quarter: 2011Q3

REPORT INFORMATION
  Report Type: 
  Country: None (occurrence: None)
  Receive Date: 20110801
  Receipt Date: 20110721
  Transmission Date: 20111222
  Serious: Yes (Hospitalization, Other)
  Sender: FDA-Public Use
  Company Number: PHEH2008US07502

PATIENT
  Sex: Male

DRUGS (57)
  1. OXYCONTIN [Concomitant]
  2. PROTONIX [Concomitant]
  3. NAVELBINE [Concomitant]
  4. ARANESP [Concomitant]
  5. PERCOCET [Concomitant]
  6. ZOMETA [Suspect]
     Dosage: UNK
  7. CHEMOTHERAPEUTICS NOS [Concomitant]
  8. AVINZA [Concomitant]
  9. TIZANIDINE HCL [Concomitant]
  10. ACTIQ [Concomitant]
  11. NITROSTAT [Concomitant]
  12. DOCUSATE [Concomitant]
  13. CEFEPIME [Concomitant]
  14. PROCHLORPERAZINE [Concomitant]
  15. LOPERAMIDE HCL [Concomitant]
     Dosage: UNK
  16. ATIVAN [Concomitant]
  17. SENNA [Concomitant]
  18. ZOLPIDEM [Concomitant]
  19. LORAZEPAM [Concomitant]
  20. COMPAZINE [Concomitant]
  21. ACETAMINOPHEN [Concomitant]
  22. CYMBALTA [Concomitant]
  23. NAVELBINE [Concomitant]
  24. DEXAMETHASONE [Concomitant]
  25. TAXOL [Concomitant]
     Dosage: UNK
  26. ERLOTINIB HYDROCHLORIDE [Concomitant]
     Dosage: UNK
  27. AMBIEN [Concomitant]
  28. POTASSIUM CHLORIDE [Concomitant]
  29. MILK OF MAGNESIA TAB [Concomitant]
  30. TARCEVA [Concomitant]
  31. FOLIC ACID [Concomitant]
  32. LEVAQUIN [Concomitant]
  33. NEUPOGEN [Concomitant]
  34. MEGACE [Concomitant]
  35. CEPHALEXIN [Concomitant]
  36. AMOXICILLIN [Concomitant]
  37. HYDROCODONE [Concomitant]
  38. AVASTIN [Concomitant]
  39. FOLATE SODIUM [Concomitant]
  40. FENTANYL [Concomitant]
  41. PANTOPRAZOLE SODIUM [Concomitant]
  42. MORPHINE [Concomitant]
  43. ALTACE [Concomitant]
  44. DILAUDID [Concomitant]
  45. RAMIPRIL [Concomitant]
  46. CARBOPLATIN [Concomitant]
  47. CHLORHEXIDINE GLUCONATE [Concomitant]
  48. VERSED [Concomitant]
  49. NARCAN [Concomitant]
  50. LUNESTA [Concomitant]
  51. PENICILLIN VK [Concomitant]
  52. DOXYCYCLINE [Concomitant]
  53. LACTULOSE [Concomitant]
  54. XANAX [Concomitant]
  55. MIRALAX [Concomitant]
  56. SODIUM CHLORIDE [Concomitant]
  57. CIPROFLOXACIN [Concomitant]

REACTIONS (33)
  - RENAL CYST [None]
  - OSTEONECROSIS OF JAW [None]
  - BONE DISORDER [None]
  - MITRAL VALVE INCOMPETENCE [None]
  - AORTIC DILATATION [None]
  - NEUTROPENIA [None]
  - ANHEDONIA [None]
  - ANXIETY [None]
  - TRICUSPID VALVE INCOMPETENCE [None]
  - HEPATIC LESION [None]
  - PAIN [None]
  - INTERSTITIAL LUNG DISEASE [None]
  - IMPLANT SITE EFFUSION [None]
  - GASTROINTESTINAL HAEMORRHAGE [None]
  - EMPHYSEMA [None]
  - INJURY [None]
  - PYREXIA [None]
  - CONSTIPATION [None]
  - LEUKOCYTOSIS [None]
  - PSEUDOMONAS INFECTION [None]
  - HAEMATURIA [None]
  - ANAEMIA [None]
  - HYPERTENSION [None]
  - PAIN IN EXTREMITY [None]
  - HAEMATOCHEZIA [None]
  - COLON CANCER METASTATIC [None]
  - COMPRESSION FRACTURE [None]
  - LYMPHADENOPATHY [None]
  - LOOSE TOOTH [None]
  - BACTERIAL INFECTION [None]
  - CHEST PAIN [None]
  - OSTEOSCLEROSIS [None]
  - METASTASES TO BONE [None]
